FAERS Safety Report 12340932 (Version 1)
Quarter: 2016Q2

REPORT INFORMATION
  Report Type: Spontaneous
  Country: US (occurrence: US)
  Receive Date: 20160506
  Receipt Date: 20160506
  Transmission Date: 20160815
  Serious: No
  Sender: FDA-Public Use
  Company Number: US-PFIZER INC-2016211091

PATIENT
  Age: 49 Year
  Sex: Male
  Weight: 78.5 kg

DRUGS (10)
  1. PAROXETINE. [Concomitant]
     Active Substance: PAROXETINE
     Dosage: 60 MG, DAILY
     Route: 048
     Dates: start: 20150921, end: 20160318
  2. OMEPRAZOLE. [Concomitant]
     Active Substance: OMEPRAZOLE
     Dosage: 40 MG, DAILY
     Route: 048
     Dates: start: 20151228
  3. ACETAMINOPHEN\HYDROCODONE BITARTRATE [Concomitant]
     Active Substance: ACETAMINOPHEN\HYDROCODONE BITARTRATE
     Dosage: 1 DF,7.5 MG-500 MG TAB, TAKE 1 TABLET EVERY 4 TO 6 HOURS, MAXIMUM DAILY DOSE IS 6.
     Route: 048
     Dates: start: 20111003
  4. CYCLOBENZAPRINE [Concomitant]
     Active Substance: CYCLOBENZAPRINE
     Dosage: 10 MG, 3X/DAY
     Route: 048
     Dates: start: 20151230
  5. HYDROMORPHONE [Concomitant]
     Active Substance: HYDROMORPHONE
     Dosage: 6 MG, UNK
     Route: 048
     Dates: start: 20141121
  6. LYRICA [Suspect]
     Active Substance: PREGABALIN
     Dosage: 300 MG, 3X/DAY
     Route: 048
  7. ACETAMINOPHEN\HYDROCODONE BITARTRATE [Concomitant]
     Active Substance: ACETAMINOPHEN\HYDROCODONE BITARTRATE
     Dosage: 1 DF, 7.5 MG-500 MG TAB, TAKE 1 TABLET EVERY 4 TO 6 HOURS, MAXIMUM DAILY DOSE IS 6.
     Route: 048
     Dates: start: 20111116
  8. CETIRIZINE [Concomitant]
     Active Substance: CETIRIZINE HYDROCHLORIDE
     Dosage: 10 MG, DAILY
     Route: 048
     Dates: start: 20160114
  9. VIAGRA [Concomitant]
     Active Substance: SILDENAFIL CITRATE
     Dosage: UNK, AS NEEDED (1 TABLET(S) PO DAILY AS NEEDED)
     Route: 048
     Dates: start: 20150521
  10. NYSTATIN. [Concomitant]
     Active Substance: NYSTATIN
     Dosage: UNK UNK, 2X/DAY (100,000 UNIT/G/ 1 APPLICATION TOP)
     Route: 061

REACTIONS (5)
  - Back pain [Unknown]
  - Arthralgia [Unknown]
  - Neck pain [Unknown]
  - Prescribed overdose [Unknown]
  - Pain in extremity [Unknown]
